FAERS Safety Report 9518915 (Version 1)
Quarter: 2013Q3

REPORT INFORMATION
  Report Type: Spontaneous
  Country: US (occurrence: None)
  Receive Date: 20130910
  Receipt Date: 20130910
  Transmission Date: 20140515
  Serious: No
  Sender: FDA-Public Use
  Company Number: 2013-00122

PATIENT
  Age: 70 Year
  Sex: Male
  Weight: 109.77 kg

DRUGS (6)
  1. ZICAM EXTREME CONGESTION RELIEF [Suspect]
     Dosage: 1 SPRAY NASALLY EVERY 3-4 HOURS
     Dates: start: 201307
  2. BACTRIM [Concomitant]
  3. INSULIN [Concomitant]
  4. ADVAIR [Concomitant]
  5. ALBUTERAL [Concomitant]
  6. LEVOXYL [Concomitant]

REACTIONS (3)
  - Anosmia [None]
  - Ageusia [None]
  - Drug dependence [None]
